FAERS Safety Report 9557767 (Version 1)
Quarter: 2013Q3

REPORT INFORMATION
  Report Type: Spontaneous
  Country: DZ (occurrence: DZ)
  Receive Date: 20130926
  Receipt Date: 20130926
  Transmission Date: 20140515
  Serious: Yes (Hospitalization, Other)
  Sender: FDA-Public Use
  Company Number: DZ-ABBVIE-13P-160-1149194-00

PATIENT
  Age: 33 Year
  Sex: Male
  Weight: 48 kg

DRUGS (1)
  1. HUMIRA [Suspect]
     Indication: ANKYLOSING SPONDYLITIS
     Route: 058
     Dates: start: 20130408, end: 20130729

REACTIONS (6)
  - Lung disorder [Not Recovered/Not Resolved]
  - Pyrexia [Unknown]
  - Asthenia [Unknown]
  - Dyspnoea [Unknown]
  - Productive cough [Unknown]
  - Myocarditis septic [Unknown]
